FAERS Safety Report 18142255 (Version 2)
Quarter: 2021Q1

REPORT INFORMATION
  Report Type: Report from Study
  Country: GB (occurrence: GB)
  Receive Date: 20200812
  Receipt Date: 20210119
  Transmission Date: 20210419
  Serious: Yes (Other)
  Sender: FDA-Public Use
  Company Number: NVSC2020GB215981

PATIENT
  Sex: Female

DRUGS (1)
  1. ERELZI [Suspect]
     Active Substance: ETANERCEPT-SZZS
     Indication: RHEUMATOID ARTHRITIS
     Dosage: 50 MG, QW
     Route: 058

REACTIONS (13)
  - Rheumatoid arthritis [Unknown]
  - Cerebrovascular accident [Recovered/Resolved with Sequelae]
  - Decreased appetite [Unknown]
  - Visual impairment [Recovered/Resolved with Sequelae]
  - Influenza [Unknown]
  - Suicidal ideation [Unknown]
  - Arthralgia [Unknown]
  - Drug ineffective [Unknown]
  - Neck pain [Unknown]
  - Pain in extremity [Unknown]
  - Pain [Unknown]
  - Depressed mood [Recovering/Resolving]
  - Poor quality sleep [Unknown]
